FAERS Safety Report 8376418-1 (Version None)
Quarter: 2012Q2

REPORT INFORMATION
  Report Type: 
  Country: None (occurrence: None)
  Receive Date: 20120518
  Receipt Date: 20120503
  Transmission Date: 20120825
  Serious: Yes (Hospitalization)
  Sender: FDA-Public Use
  Company Number: THQ2012A03602

PATIENT
  Age: 78 Year
  Sex: Male

DRUGS (4)
  1. GLYBURIDE [Concomitant]
  2. ANTIHYPERTENSIVES [Concomitant]
  3. ACTOS [Suspect]
     Indication: TYPE 2 DIABETES MELLITUS
     Dosage: 30 MG (1 D) PER ORAL
     Route: 048
     Dates: start: 20110301, end: 20120301
  4. GLUCOPHAGE [Concomitant]

REACTIONS (4)
  - PLEURAL EFFUSION [None]
  - OEDEMA PERIPHERAL [None]
  - SCROTAL OEDEMA [None]
  - ABDOMINAL DISTENSION [None]
